FAERS Safety Report 20916233 (Version 1)
Quarter: 2022Q2

REPORT INFORMATION
  Report Type: Spontaneous
  Country: US (occurrence: US)
  Receive Date: 20220604
  Receipt Date: 20220604
  Transmission Date: 20220721
  Serious: No
  Sender: FDA-Public Use
  Company Number: US-SANOFI-01126431

PATIENT
  Age: 49 Year
  Sex: Male

DRUGS (1)
  1. LANTUS SOLOSTAR [Suspect]
     Active Substance: INSULIN GLARGINE
     Indication: Type 2 diabetes mellitus
     Dosage: DRUG STRUCTURE DOSAGE : 25 UNITS DRUG INTERVAL DOSAGE : DAILY DRUG TREATMENT DURATION:1.5 YEARS
     Dates: start: 2021

REACTIONS (1)
  - Inappropriate schedule of product administration [Unknown]
